FAERS Safety Report 7670038-X (Version None)
Quarter: 2011Q3

REPORT INFORMATION
  Report Type: 
  Country: None (occurrence: None)
  Receive Date: 20110808
  Receipt Date: 20110722
  Transmission Date: 20111222
  Serious: Yes (Hospitalization)
  Sender: FDA-Public Use
  Company Number: NL-AMGEN-NLDNI2011031503

PATIENT
  Age: 41 Year
  Sex: Female

DRUGS (7)
  1. CYCLOPHOSPHAMIDE [Suspect]
     Dosage: 1000 MG, UNK
     Route: 042
  2. DEXAMETHASONE [Concomitant]
  3. DOCETAXEL [Suspect]
     Dosage: 140 MG, UNK
     Route: 042
  4. ZOLEDRONIC ACID [Suspect]
     Dosage: 4.0 MG, UNK
     Route: 042
  5. NEULASTA [Suspect]
     Indication: PRODUCT USED FOR UNKNOWN INDICATION
     Dosage: UNK
  6. DOXORUBICIN HCL [Suspect]
     Dosage: 95 MG, UNK
     Route: 042
  7. ONDANSETRON [Concomitant]

REACTIONS (2)
  - PNEUMONIA [None]
  - NEUTROPENIA [None]
